FAERS Safety Report 15320783 (Version 2)
Quarter: 2018Q3

REPORT INFORMATION
  Report Type: Spontaneous
  Country: US (occurrence: US)
  Receive Date: 20180827
  Receipt Date: 20180904
  Transmission Date: 20181010
  Serious: Yes (Other)
  Sender: FDA-Public Use
  Company Number: US-HORIZON-DUE-0420-2018

PATIENT
  Age: 24 Year
  Sex: Female

DRUGS (4)
  1. GABAPENTIN. [Concomitant]
     Active Substance: GABAPENTIN
  2. ORSYPHIA [Concomitant]
  3. DUEXIS [Suspect]
     Active Substance: FAMOTIDINE\IBUPROFEN
     Indication: ARTHRITIS
     Dosage: 1 TABLET 2 TIMES A DAY
     Route: 048
  4. BUPROPRION [Concomitant]
     Active Substance: BUPROPION

REACTIONS (3)
  - Product distribution issue [Unknown]
  - Kidney infection [Recovered/Resolved]
  - Off label use [Unknown]
